FAERS Safety Report 5757712-7 (Version None)
Quarter: 2008Q2

REPORT INFORMATION
  Report Type: 
  Country: None (occurrence: None)
  Receive Date: 20080529
  Receipt Date: 20080516
  Transmission Date: 20081010
  Serious: Yes (Other)
  Sender: FDA-Public Use
  Company Number: US023362

PATIENT
  Age: 68 Year
  Sex: Female
  Weight: 92 kg

DRUGS (8)
  1. ACTIQ [Suspect]
     Indication: BACK PAIN
     Dosage: 800 UG TOOK UP TO 16 TIMES A DAY BUCCAL
     Route: 002
     Dates: start: 20061203, end: 20080101
  2. ACTIQ [Suspect]
     Indication: PAIN
     Dosage: 800 UG TOOK UP TO 16 TIMES A DAY BUCCAL
     Route: 002
     Dates: start: 20061203, end: 20080101
  3. ACTIQ [Suspect]
     Indication: BACK PAIN
     Dosage: 600 UG MAXIMUM 3 TIMES DAILY BUCCAL
     Route: 002
     Dates: start: 20080101
  4. ACTIQ [Suspect]
     Indication: PAIN
     Dosage: 600 UG MAXIMUM 3 TIMES DAILY BUCCAL
     Route: 002
     Dates: start: 20080101
  5. PALLADONE [Concomitant]
  6. PREGABALIN [Concomitant]
  7. SOLPADOL [Concomitant]
  8. ELTROXIN [Concomitant]

REACTIONS (1)
  - DRUG DEPENDENCE [None]
